FAERS Safety Report 6087800-X (Version None)
Quarter: 2009Q1

REPORT INFORMATION
  Report Type: 
  Country: None (occurrence: None)
  Receive Date: 20090223
  Receipt Date: 20090211
  Transmission Date: 20090719
  Serious: Yes (Other)
  Sender: FDA-Public Use
  Company Number: US-ELI_LILLY_AND_COMPANY-US200902002456

PATIENT
  Age: 82 Year
  Sex: Female

DRUGS (5)
  1. CYMBALTA [Suspect]
     Indication: DEPRESSION
     Dosage: 30 MG, UNK
     Route: 048
     Dates: start: 20081231, end: 20090106
  2. CYMBALTA [Suspect]
     Dosage: 60 MG, UNK
     Route: 048
     Dates: start: 20090107
  3. ATENOLOL [Concomitant]
  4. POTASSIUM CHLORIDE [Concomitant]
  5. LASIX [Concomitant]

REACTIONS (1)
  - ATRIAL SEPTAL DEFECT [None]
